FAERS Safety Report 26183653 (Version 1)
Quarter: 2025Q4

REPORT INFORMATION
  Report Type: Report from Study
  Country: US (occurrence: US)
  Receive Date: 20251221
  Receipt Date: 20251221
  Transmission Date: 20260117
  Serious: Yes (Other)
  Sender: ABBVIE
  Company Number: US-ABBVIE-6594969

PATIENT
  Age: 40 Year
  Sex: Male

DRUGS (1)
  1. SKYRIZI [Suspect]
     Active Substance: RISANKIZUMAB-RZAA
     Indication: Crohn^s disease
     Route: 058
     Dates: start: 20250303

REACTIONS (8)
  - Surgery [Unknown]
  - Arthralgia [Not Recovered/Not Resolved]
  - Neuropathy peripheral [Recovering/Resolving]
  - Osteoporosis [Not Recovered/Not Resolved]
  - Pain in extremity [Recovering/Resolving]
  - Ostomy bag placement [Unknown]
  - Sepsis [Unknown]
  - Thrombosis [Unknown]

NARRATIVE: CASE EVENT DATE: 20250101
